FAERS Safety Report 13558531 (Version 2)
Quarter: 2017Q2

REPORT INFORMATION
  Report Type: Spontaneous
  Country: US (occurrence: US)
  Receive Date: 20170518
  Receipt Date: 20170604
  Transmission Date: 20170830
  Serious: No
  Sender: FDA-Public Use
  Company Number: US-009507513-1705USA008241

PATIENT
  Age: 34 Year
  Sex: Female

DRUGS (31)
  1. DEXAMETHASONE. [Suspect]
     Active Substance: DEXAMETHASONE
     Indication: ANAESTHESIA
     Dosage: 4 MG, UNK; DURING 2ND ECT TREATMENT
  2. GLYCOPYRROLATE. [Concomitant]
     Active Substance: GLYCOPYRROLATE
     Dosage: 0.2 MG, UNK; DURING 3RD ECT TREATMENT
  3. DEXAMETHASONE. [Suspect]
     Active Substance: DEXAMETHASONE
     Dosage: 4 MG, UNK; DURING 3RD ECT TREATMENT
  4. PROPOFOL. [Concomitant]
     Active Substance: PROPOFOL
     Indication: ANAESTHESIA
     Dosage: 40 MG, UNK; DURING 1ST ECT TREATMENT
  5. SUCCINYLCHOLINE CHLORIDE. [Concomitant]
     Active Substance: SUCCINYLCHOLINE CHLORIDE
     Dosage: 110 MG, UNK; DURING 2ND ECT TREATMENT
  6. SODIUM CITRATE. [Concomitant]
     Active Substance: SODIUM CITRATE
     Indication: ANAESTHESIA
     Dosage: 30 ML, UNK; DURING 1ST ECT TREATMENT
     Route: 048
  7. SODIUM CITRATE. [Concomitant]
     Active Substance: SODIUM CITRATE
     Dosage: 30 ML, UNK; DURING 2ND ECT TREATMENT
     Route: 048
  8. METHOHEXITAL [Concomitant]
     Active Substance: METHOHEXITAL
     Indication: INDUCTION OF ANAESTHESIA
     Dosage: 80 MG, UNK; DURING 1ST ECT TREATMENT
  9. METHOHEXITAL [Concomitant]
     Active Substance: METHOHEXITAL
     Dosage: 80 MG, UNK; DURING 3RD ECT TREATMENT
  10. PROPOFOL. [Concomitant]
     Active Substance: PROPOFOL
     Dosage: 100 MG, UNK; DURING 2ND ECT TREATMENT
  11. PROPOFOL. [Concomitant]
     Active Substance: PROPOFOL
     Dosage: 150 MG, UNK; DURING 3RD ECT TREATMENT
  12. ESMOLOL HYDROCHLORIDE. [Concomitant]
     Active Substance: ESMOLOL HYDROCHLORIDE
     Dosage: 40 MG, UNK; DURING 2ND ECT TREATMENT
  13. GLYCOPYRROLATE. [Concomitant]
     Active Substance: GLYCOPYRROLATE
     Indication: ANAESTHESIA
     Dosage: 0.2 MG, UNK; DURING 1ST ECT TREATMENT
  14. SUCCINYLCHOLINE CHLORIDE. [Concomitant]
     Active Substance: SUCCINYLCHOLINE CHLORIDE
     Dosage: 110 MG, UNK; DURING 3RD ECT TREATMENT
  15. ONDANSETRON [Concomitant]
     Active Substance: ONDANSETRON
     Dosage: 4 MG, UNK; DURING 2ND ECT TREATMENT
  16. PROMETHAZINE [Concomitant]
     Active Substance: PROMETHAZINE\PROMETHAZINE HYDROCHLORIDE
     Indication: ANAESTHESIA
     Dosage: 12.5 MG, UNK; DURING 1ST ECT TREATMENT
  17. GLYCOPYRROLATE. [Concomitant]
     Active Substance: GLYCOPYRROLATE
     Dosage: 0.2 MG, UNK; DURING 2ND ECT TREATMENT
  18. ESMOLOL HYDROCHLORIDE. [Concomitant]
     Active Substance: ESMOLOL HYDROCHLORIDE
     Indication: ANAESTHESIA
     Dosage: 50 MG, UNK; DURING 1ST ECT TREATMENT
  19. METHOHEXITAL [Concomitant]
     Active Substance: METHOHEXITAL
     Dosage: 80 MG, UNK; DURING 2ND ECT TREATMENT
  20. LIDOCAINE. [Concomitant]
     Active Substance: LIDOCAINE
     Indication: ANAESTHESIA
     Dosage: 20 MG, UNK; DURING 2ND ECT TREATMENT
  21. ESMOLOL HYDROCHLORIDE. [Concomitant]
     Active Substance: ESMOLOL HYDROCHLORIDE
     Dosage: 30 MG, UNK; DURING 3RD ECT TREATMENT
  22. SODIUM CITRATE. [Concomitant]
     Active Substance: SODIUM CITRATE
     Dosage: 30 ML, UNK; DURING 3RD ECT TREATMENT
     Route: 048
  23. ACETAMINOPHEN. [Concomitant]
     Active Substance: ACETAMINOPHEN
     Dosage: 1000 MG, UNK; DURING 3RD ECT TREATMENT
  24. ONDANSETRON [Concomitant]
     Active Substance: ONDANSETRON
     Indication: ANAESTHESIA
     Dosage: 4 MG, UNK; DURING 1ST ECT TREATMENT
  25. SUCCINYLCHOLINE CHLORIDE. [Concomitant]
     Active Substance: SUCCINYLCHOLINE CHLORIDE
     Indication: ANAESTHESIA
     Dosage: 110 MG, UNK; DURING 1ST ECT TREATMENT
  26. ACETAMINOPHEN. [Concomitant]
     Active Substance: ACETAMINOPHEN
     Indication: ANAESTHESIA
     Dosage: 1000 MG, UNK; DURING 1ST ECT TREATMENT
  27. ACETAMINOPHEN. [Concomitant]
     Active Substance: ACETAMINOPHEN
     Dosage: 1000 MG, UNK; DURING 2ND ECT TREATMENT
  28. ONDANSETRON [Concomitant]
     Active Substance: ONDANSETRON
     Dosage: 4 MG, UNK; DURING 3RD ECT TREATMENT
  29. EPHEDRINE. [Concomitant]
     Active Substance: EPHEDRINE
     Indication: ANAESTHESIA
     Dosage: 5 MG, UNK; DURING 3RD ECT TREATMENT
  30. LIDOCAINE. [Concomitant]
     Active Substance: LIDOCAINE
     Dosage: 20 MG, UNK; DURING 3RD ECT TREATMENT
  31. PROMETHAZINE [Concomitant]
     Active Substance: PROMETHAZINE\PROMETHAZINE HYDROCHLORIDE
     Dosage: 12.5 MG, UNK; DURING 2ND ECT TREATMENT

REACTIONS (1)
  - Exposure during pregnancy [Unknown]
